FAERS Safety Report 15486041 (Version 1)
Quarter: 2018Q4

REPORT INFORMATION
  Report Type: Spontaneous
  Country: US (occurrence: US)
  Receive Date: 20181011
  Receipt Date: 20181011
  Transmission Date: 20190205
  Serious: No
  Sender: FDA-Public Use
  Company Number: US-B.I. PHARMACEUTICALS,INC./RIDGEFIELD-2018-BI-049141

PATIENT
  Age: 77 Year
  Sex: Female

DRUGS (1)
  1. JARDIANCE [Suspect]
     Active Substance: EMPAGLIFLOZIN
     Indication: TYPE 2 DIABETES MELLITUS
     Dosage: FORM STRENGTH: 25 MG; FORMULATION: TABLET? YES ?ACTION TAKEN DOSE NOT CHANGED
     Route: 048
     Dates: start: 201704

REACTIONS (2)
  - Fungal skin infection [Not Recovered/Not Resolved]
  - Genital infection fungal [Not Recovered/Not Resolved]

NARRATIVE: CASE EVENT DATE: 201806
